FAERS Safety Report 4813579-2 (Version None)
Quarter: 2005Q4

REPORT INFORMATION
  Report Type: 
  Country: None (occurrence: None)
  Receive Date: 20051028
  Receipt Date: 20050228
  Transmission Date: 20060501
  Serious: No
  Sender: FDA-Public Use
  Company Number: US-GLAXOSMITHKLINE-A0547578A

PATIENT
  Age: 72 Year
  Sex: Female

DRUGS (22)
  1. ADVAIR DISKUS 100/50 [Suspect]
     Indication: FIBROSIS
     Dosage: 1PUFF TWICE PER DAY
     Route: 055
  2. SINGULAIR [Concomitant]
  3. ALBUTEROL [Concomitant]
  4. ALDACTONE [Concomitant]
  5. ARAVA [Concomitant]
  6. ASPIRIN [Concomitant]
  7. SULFADINE [Concomitant]
     Route: 065
  8. CALCITRIOL [Concomitant]
  9. COREG [Concomitant]
  10. DESYREL [Concomitant]
  11. FLEXERIL [Concomitant]
     Route: 065
  12. HYZAAR [Concomitant]
  13. LASIX [Concomitant]
  14. KINERET [Concomitant]
  15. PREDNISONE [Concomitant]
  16. PRILOSEC [Concomitant]
  17. POTASSIUM [Concomitant]
  18. VERAPAMIL [Concomitant]
  19. WELLBUTRIN [Concomitant]
  20. XALATAN [Concomitant]
  21. ZOCOR [Concomitant]
  22. MIACALCIN [Concomitant]

REACTIONS (1)
  - CANDIDIASIS [None]
